FAERS Safety Report 25994407 (Version 1)
Quarter: 2025Q4

REPORT INFORMATION
  Report Type: Spontaneous
  Country: JP (occurrence: JP)
  Receive Date: 20251104
  Receipt Date: 20251104
  Transmission Date: 20260118
  Serious: Yes (Other)
  Sender: ROCHE
  Company Number: JP-CHUGAI-2025034524

PATIENT
  Age: 68 Year
  Sex: Male

DRUGS (2)
  1. GAZYVA [Suspect]
     Active Substance: OBINUTUZUMAB
     Indication: Chronic lymphocytic leukaemia
     Dosage: UNK
     Route: 042
  2. ACALABRUTINIB [Concomitant]
     Active Substance: ACALABRUTINIB
     Indication: Chronic lymphocytic leukaemia
     Dosage: UNK
     Route: 050

REACTIONS (7)
  - Cytokine storm [Unknown]
  - Neutrophil count decreased [Unknown]
  - Infusion related reaction [Unknown]
  - Pyrexia [Unknown]
  - Haematemesis [Unknown]
  - Mallory-Weiss syndrome [Unknown]
  - Gastric mucosal lesion [Unknown]
